FAERS Safety Report 21109405 (Version 1)
Quarter: 2022Q3

REPORT INFORMATION
  Report Type: Spontaneous
  Country: US (occurrence: US)
  Receive Date: 20220721
  Receipt Date: 20220721
  Transmission Date: 20221027
  Serious: Yes (Hospitalization)
  Sender: FDA-Public Use
  Company Number: US-SA-SAC20220717000109

PATIENT
  Age: 77 Year
  Sex: Male
  Weight: 93.2 kg

DRUGS (18)
  1. TAXOTERE [Suspect]
     Active Substance: DOCETAXEL
     Indication: Neoplasm
     Dosage: 75 MG/KG, 1X
     Route: 042
     Dates: start: 20220215, end: 20220215
  2. TAXOTERE [Suspect]
     Active Substance: DOCETAXEL
     Dosage: 60 MG/KG, Q3W
     Route: 042
     Dates: start: 20220309, end: 20220419
  3. TAXOTERE [Suspect]
     Active Substance: DOCETAXEL
     Dosage: 60 MG/KG, Q3W
     Route: 042
     Dates: start: 20220601
  4. MIRZOTAMAB CLEZUTOCLAX [Suspect]
     Active Substance: MIRZOTAMAB CLEZUTOCLAX
     Dosage: 16 MG/KG, Q3W
     Route: 042
     Dates: start: 20220215, end: 20220419
  5. MIRZOTAMAB CLEZUTOCLAX [Suspect]
     Active Substance: MIRZOTAMAB CLEZUTOCLAX
     Dosage: UNK
     Dates: start: 20220601
  6. DECADRON [Concomitant]
     Active Substance: DEXAMETHASONE
  7. APIXABAN [Concomitant]
     Active Substance: APIXABAN
     Indication: Pulmonary embolism
     Route: 048
  8. ASPIRIN [Concomitant]
     Active Substance: ASPIRIN
     Indication: Cardiac disorder
     Route: 048
  9. ATORVASTATIN [Concomitant]
     Active Substance: ATORVASTATIN
     Indication: Hyperlipidaemia
     Dosage: 40 MG, QD
     Route: 048
     Dates: start: 2012
  10. METOPROLOL TARTRATE [Concomitant]
     Active Substance: METOPROLOL TARTRATE
     Indication: Hypertension
     Dosage: 25 MG, BID
     Route: 048
     Dates: start: 2012
  11. CENTRUM SILVER [ASCORBIC ACID;BETACAROTENE;BIOTIN;CALCIUM PHOSPHATE;CH [Concomitant]
     Indication: Multi-vitamin deficiency
     Dosage: 1 DF, QD
     Route: 048
     Dates: start: 2012
  12. OMEGA 3 FISH OIL [FISH OIL] [Concomitant]
     Indication: Cardiac disorder
     Dosage: 1 DF, QD
     Route: 048
     Dates: start: 2012
  13. PANTOPRAZOLE [Concomitant]
     Active Substance: PANTOPRAZOLE
     Indication: Gastrooesophageal reflux disease
     Dosage: 40 MG, QD
     Route: 048
     Dates: start: 2012
  14. MINERALS\VITAMINS [Concomitant]
     Active Substance: MINERALS\VITAMINS
     Indication: Glaucoma
     Dosage: 2 DF, QD
     Route: 048
     Dates: start: 2018
  15. DOCUSATE [Concomitant]
     Active Substance: DOCUSATE
     Indication: Constipation
     Dosage: 100 MG, QD
     Route: 048
     Dates: start: 2012
  16. DEXAMETHASONE [Concomitant]
     Active Substance: DEXAMETHASONE
     Indication: Premedication
     Dosage: BID DAY BEFORE TREATMENT
     Route: 048
     Dates: start: 20220214
  17. DEXAMETHASONE [Concomitant]
     Active Substance: DEXAMETHASONE
     Dosage: 8 MG, Q3W
     Route: 048
     Dates: start: 20220215
  18. ONDANSETRON [Concomitant]
     Active Substance: ONDANSETRON
     Indication: Premedication
     Dosage: 8 MG, Q3W
     Route: 048
     Dates: start: 20220215

REACTIONS (8)
  - Peripheral coldness [Unknown]
  - Pallor [Unknown]
  - Pleural rub [Unknown]
  - Non-cardiac chest pain [Unknown]
  - Asthenia [Unknown]
  - Anaemia [Unknown]
  - Pleural effusion [Unknown]
  - Dyspnoea [Unknown]

NARRATIVE: CASE EVENT DATE: 20220514
